FAERS Safety Report 9123092 (Version 1)
Quarter: 2013Q1

REPORT INFORMATION
  Report Type: Spontaneous
  Country: US (occurrence: None)
  Receive Date: 20130131
  Receipt Date: 20130131
  Transmission Date: 20140127
  Serious: Yes (Other)
  Sender: FDA-Public Use
  Company Number: ADR-2013UNK005

PATIENT
  Sex: Female

DRUGS (1)
  1. NEVIRAPINE TABS/(UNK MFR) [Suspect]
     Indication: ACQUIRED IMMUNODEFICIENCY SYNDROME
     Dosage: UNKNOW DOSAGE + ORAL
     Route: 048

REACTIONS (3)
  - Hepatotoxicity [None]
  - Rash [None]
  - Exposure during pregnancy [None]
